FAERS Safety Report 23150693 (Version 1)
Quarter: 2023Q4

REPORT INFORMATION
  Report Type: Spontaneous
  Country: KR (occurrence: KR)
  Receive Date: 20231106
  Receipt Date: 20231106
  Transmission Date: 20240110
  Serious: No
  Sender: FDA-Public Use
  Company Number: KR-SCALL-2023-APC-067687

PATIENT
  Sex: Male

DRUGS (2)
  1. DUTASTERIDE [Suspect]
     Active Substance: DUTASTERIDE
     Route: 065
  2. PROPECIA [Concomitant]
     Active Substance: FINASTERIDE

REACTIONS (4)
  - Wrong technique in device usage process [Unknown]
  - Poor quality product administered [Unknown]
  - Product contamination [Unknown]
  - Product complaint [Unknown]
